FAERS Safety Report 13751952 (Version 1)
Quarter: 2017Q3

REPORT INFORMATION
  Report Type: Spontaneous
  Country: US (occurrence: US)
  Receive Date: 20170713
  Receipt Date: 20170713
  Transmission Date: 20171127
  Serious: Yes (Life-Threatening, Hospitalization, Other)
  Sender: FDA-Public Use
  Company Number: US-MYLANLABS-2017M1041405

PATIENT

DRUGS (9)
  1. FLEXERIL [Suspect]
     Active Substance: CYCLOBENZAPRINE HYDROCHLORIDE
     Indication: MUSCLE SPASMS
     Dosage: AS NEEDED
     Route: 065
  2. COLISTIN [Suspect]
     Active Substance: COLISTIN
     Indication: BACTERIAL INFECTION
     Dosage: 3 MG/KG/DAY DIVIDED INTO 2 DOSES
     Route: 042
  3. POLYMIXIN B [Suspect]
     Active Substance: POLYMYXIN B
     Indication: BACTERIAL INFECTION
     Dosage: LOADING DOSE:160MG
     Route: 041
  4. POLYMIXIN B [Suspect]
     Active Substance: POLYMYXIN B
     Route: 041
  5. ZANAFLEX [Suspect]
     Active Substance: TIZANIDINE HYDROCHLORIDE
     Indication: MUSCLE SPASMS
     Dosage: AT BEDTIME; LATER DOSE INCREASED TO 4 MG/8H
     Route: 065
  6. MEROPENEM. [Suspect]
     Active Substance: MEROPENEM
     Indication: BACTERIAL INFECTION
     Dosage: LATER, DOSE INCREASED TO 2G/8H
     Route: 042
  7. MEROPENEM. [Suspect]
     Active Substance: MEROPENEM
     Route: 042
  8. FLUCONAZOLE. [Suspect]
     Active Substance: FLUCONAZOLE
     Indication: PRODUCT USED FOR UNKNOWN INDICATION
     Dosage: 400 MG DAILY
     Route: 048
  9. ZANAFLEX [Suspect]
     Active Substance: TIZANIDINE HYDROCHLORIDE
     Route: 065

REACTIONS (3)
  - Respiratory paralysis [Recovered/Resolved]
  - Eosinophilia [Recovered/Resolved]
  - Dysarthria [Unknown]
